FAERS Safety Report 5277005-4 (Version None)
Quarter: 2007Q1

REPORT INFORMATION
  Report Type: 
  Country: None (occurrence: None)
  Receive Date: 20070327
  Receipt Date: 20070109
  Transmission Date: 20070707
  Serious: No
  Sender: FDA-Public Use
  Company Number: US-BRISTOL-MYERS SQUIBB COMPANY-13636659

PATIENT
  Age: 58 Year
  Sex: Female
  Weight: 65 kg

DRUGS (9)
  1. ORENCIA [Suspect]
     Indication: RHEUMATOID ARTHRITIS
     Route: 042
     Dates: start: 20060914
  2. PREDNISONE [Concomitant]
  3. NEURONTIN [Concomitant]
  4. PERCOCET [Concomitant]
  5. METFORMIN HCL [Concomitant]
  6. PRILOSEC [Concomitant]
  7. VITAMINS [Concomitant]
  8. ASPIRIN [Concomitant]
  9. CELEXA [Concomitant]

REACTIONS (2)
  - EMPHYSEMA [None]
  - NASOPHARYNGITIS [None]
